FAERS Safety Report 9495202 (Version 2)
Quarter: 2013Q3

REPORT INFORMATION
  Report Type: Report from Study
  Country: AU (occurrence: AU)
  Receive Date: 20130903
  Receipt Date: 20130903
  Transmission Date: 20140515
  Serious: Yes (Death, Other)
  Sender: FDA-Public Use
  Company Number: PHHY2013AU085275

PATIENT
  Age: 63 Year
  Sex: Male

DRUGS (12)
  1. CLOZARIL [Suspect]
     Indication: SCHIZOPHRENIA
     Dosage: 700 MG, UNK
     Dates: start: 20050411
  2. ABILIFY [Concomitant]
     Dosage: 30 MG, QD
  3. DIAZEPAM [Concomitant]
     Dosage: 5 MG, BID
  4. VALPROATE [Concomitant]
     Dosage: 1000 MG, BID
     Route: 048
  5. BENZTROPINE [Concomitant]
     Dosage: 2 MG, NOCTE
     Route: 048
  6. METFORMIN [Concomitant]
     Dosage: 500 MG, BID
     Route: 048
  7. KARVEZIDE [Concomitant]
     Dosage: UNK UKN, DAILY
  8. ASPIRIN [Concomitant]
     Dosage: 100 MG, QD
  9. CALTRATE [Concomitant]
     Dosage: 600 MG, QD
  10. NEXIUM [Concomitant]
     Dosage: 40 MG, QD
  11. ATROVENT [Concomitant]
     Dosage: UNK UKN, UNK
  12. SERETIDE [Concomitant]
     Dosage: UNK

REACTIONS (4)
  - Sudden death [Fatal]
  - Mental disorder [Unknown]
  - Blood glucose increased [Unknown]
  - Antipsychotic drug level increased [Unknown]
